FAERS Safety Report 7592451-1 (Version None)
Quarter: 2011Q3

REPORT INFORMATION
  Report Type: 
  Country: None (occurrence: None)
  Receive Date: 20110706
  Receipt Date: 20110624
  Transmission Date: 20111222
  Serious: Yes (Other)
  Sender: FDA-Public Use
  Company Number: US-BAYER-2011-023813

PATIENT
  Age: 16 Year
  Sex: Female
  Weight: 58.957 kg

DRUGS (6)
  1. ASPIRIN [Concomitant]
  2. YAZ [Suspect]
     Indication: PRODUCT USED FOR UNKNOWN INDICATION
     Dosage: UNK
     Dates: start: 20070101, end: 20080801
  3. BENADRYL [Concomitant]
  4. TYLENOL-500 [Concomitant]
  5. ADVIL LIQUI-GELS [Concomitant]
  6. NYQUIL [Concomitant]

REACTIONS (5)
  - PAIN [None]
  - GENERAL PHYSICAL HEALTH DETERIORATION [None]
  - GALLBLADDER DISORDER [None]
  - BILIARY DYSKINESIA [None]
  - INJURY [None]
